FAERS Safety Report 5795639-5 (Version None)
Quarter: 2008Q2

REPORT INFORMATION
  Report Type: 
  Country: None (occurrence: None)
  Receive Date: 20080630
  Receipt Date: 20080623
  Transmission Date: 20081010
  Serious: Yes (Hospitalization)
  Sender: FDA-Public Use
  Company Number: FR-MERCK-0806USA08722

PATIENT
  Age: 76 Year
  Sex: Female

DRUGS (4)
  1. MODURETIC 5-50 [Suspect]
     Route: 048
  2. FLECAINIDE ACETATE [Suspect]
     Route: 065
     Dates: start: 20050101, end: 20080427
  3. ASPIRIN [Concomitant]
     Route: 065
  4. METEOSPASMYL [Concomitant]
     Route: 065

REACTIONS (1)
  - ORTHOSTATIC HYPERTENSION [None]
